FAERS Safety Report 5821388-0 (Version None)
Quarter: 2008Q3

REPORT INFORMATION
  Report Type: 
  Country: None (occurrence: None)
  Receive Date: 20080721
  Receipt Date: 20080711
  Transmission Date: 20090109
  Serious: Yes (Hospitalization)
  Sender: FDA-Public Use
  Company Number: 163-21880-08070700

PATIENT
  Age: 61 Year
  Sex: Female

DRUGS (10)
  1. REVLIMID [Suspect]
     Indication: MULTIPLE MYELOMA
     Dosage: 25 MG, 1 IN 1 D, ORAL
     Route: 048
     Dates: start: 20080301, end: 20080701
  2. METOPROLOL TARTRATE [Concomitant]
  3. PRILOSEC [Concomitant]
  4. SPIRIVA [Concomitant]
  5. ALLOPURINOL [Concomitant]
  6. DEXAMETHASONE TAB [Concomitant]
  7. ZANTAC [Concomitant]
  8. POTASSIUM (POTASSIUM) [Concomitant]
  9. ASA (ACETYLSALICYLIC AICD) [Concomitant]
  10. STOOL SOFTNER (DOCUSATE SODIUM) [Concomitant]

REACTIONS (5)
  - ABDOMINAL PAIN [None]
  - BLOOD CALCIUM DECREASED [None]
  - BLOOD POTASSIUM DECREASED [None]
  - CHEST PAIN [None]
  - THROMBOTIC THROMBOCYTOPENIC PURPURA [None]
